FAERS Safety Report 22372586 (Version 2)
Quarter: 2024Q3

REPORT INFORMATION
  Report Type: Report from Study
  Country: IT (occurrence: IT)
  Receive Date: 20230526
  Receipt Date: 20240904
  Transmission Date: 20241016
  Serious: Yes (Other)
  Sender: RANBAXY
  Company Number: IT-SUN PHARMACEUTICAL INDUSTRIES LTD-2023R1-390435

PATIENT
  Age: 36 Year
  Sex: Male

DRUGS (5)
  1. APREMILAST [Suspect]
     Active Substance: APREMILAST
     Indication: Nail psoriasis
     Dosage: UNK
     Route: 065
  2. METHOTREXATE [Suspect]
     Active Substance: METHOTREXATE
     Indication: Nail psoriasis
     Dosage: UNK
     Route: 065
  3. BRODALUMAB [Suspect]
     Active Substance: BRODALUMAB
     Indication: Nail psoriasis
     Dosage: UNK
     Route: 065
  4. CALCIPOTRIENE [Suspect]
     Active Substance: CALCIPOTRIENE
     Indication: Nail psoriasis
     Dosage: UNK
     Route: 065
  5. SECUKINUMAB [Suspect]
     Active Substance: SECUKINUMAB
     Indication: Nail psoriasis
     Dosage: UNK
     Route: 065

REACTIONS (1)
  - Drug ineffective [Unknown]
